FAERS Safety Report 13370310 (Version 4)
Quarter: 2017Q2

REPORT INFORMATION
  Report Type: Spontaneous
  Country: CN (occurrence: CN)
  Receive Date: 20170324
  Receipt Date: 20170510
  Transmission Date: 20170830
  Serious: Yes (Death)
  Sender: FDA-Public Use
  Company Number: CN-BRACCO-003269

PATIENT
  Age: 40 Year
  Sex: Male

DRUGS (1)
  1. IOPAMIRO [Suspect]
     Active Substance: IOPAMIDOL
     Indication: COMPUTERISED TOMOGRAM
     Route: 042
     Dates: start: 20170321, end: 20170321

REACTIONS (3)
  - Vomiting [Unknown]
  - Anaphylactic shock [Fatal]
  - Urinary incontinence [Unknown]

NARRATIVE: CASE EVENT DATE: 20170321
